FAERS Safety Report 16136749 (Version 1)
Quarter: 2019Q2

REPORT INFORMATION
  Report Type: Spontaneous
  Country: US (occurrence: US)
  Receive Date: 20190401
  Receipt Date: 20190401
  Transmission Date: 20190711
  Serious: No
  Sender: FDA-Public Use
  Company Number: US-ASTRAZENECA-2019SE37921

PATIENT
  Sex: Female

DRUGS (1)
  1. BYETTA [Suspect]
     Active Substance: EXENATIDE
     Dosage: TWO TIMES A DAY
     Route: 058
     Dates: start: 2005

REACTIONS (5)
  - Nausea [Unknown]
  - Dizziness [Unknown]
  - Swollen tongue [Unknown]
  - Malaise [Unknown]
  - Abdominal discomfort [Unknown]
